FAERS Safety Report 9434172 (Version 2)
Quarter: 2013Q3

REPORT INFORMATION
  Report Type: Spontaneous
  Country: US (occurrence: US)
  Receive Date: 20130801
  Receipt Date: 20130906
  Transmission Date: 20140515
  Serious: No
  Sender: FDA-Public Use
  Company Number: US-B.I. PHARMACEUTICALS,INC./RIDGEFIELD-2013-BI-22082BP

PATIENT
  Age: 63 Year
  Sex: Male

DRUGS (2)
  1. COMBIVENT [Suspect]
     Indication: CHRONIC OBSTRUCTIVE PULMONARY DISEASE
     Dosage: 2 PUF
     Route: 055
     Dates: start: 201306
  2. COMBIVENT [Suspect]
     Dosage: 6 PUF
     Route: 055
     Dates: start: 201306, end: 201307

REACTIONS (3)
  - Throat irritation [Recovered/Resolved]
  - Dysphonia [Recovered/Resolved]
  - Pharyngeal oedema [Recovered/Resolved]
